FAERS Safety Report 4727143-7 (Version None)
Quarter: 2005Q3

REPORT INFORMATION
  Report Type: 
  Country: None (occurrence: None)
  Receive Date: 20050726
  Receipt Date: 20050712
  Transmission Date: 20060218
  Serious: Yes (Life-Threatening, Hospitalization)
  Sender: FDA-Public Use
  Company Number: 232767K05USA

PATIENT
  Age: 57 Year
  Sex: Female

DRUGS (20)
  1. INTERFERON BETA [Suspect]
     Dosage: 30 MCG, 1 IN 1 WEEKS
     Dates: end: 20050301
  2. REBIF [Suspect]
     Indication: MULTIPLE SCLEROSIS
     Dosage: 44 MCG, 3 IN 1 WEEKS, SUBCUTANEOUS
     Route: 058
     Dates: start: 20050405
  3. COUMADIN [Concomitant]
  4. ACIPHEX [Concomitant]
  5. CLONAZEPAM [Concomitant]
  6. CLORAZEPATE (CLORAZEPATE DIPOTASSIUM) [Concomitant]
  7. EXELON [Concomitant]
  8. NEURONTIN [Concomitant]
  9. ELAVIL [Concomitant]
  10. PROCARDIA XL [Concomitant]
  11. PROCHLORPERAZINE MALEATE [Concomitant]
  12. REMERON [Concomitant]
  13. AMANTADINE (AMANTADINE / 00055901/) [Concomitant]
  14. SINGULAIR [Concomitant]
  15. TRAZODONE (TRAZODONE) [Concomitant]
  16. ALLEGRA [Concomitant]
  17. VIAGRA [Concomitant]
  18. CELEBREX [Concomitant]
  19. ACETYLSALICYLIC ACID SRT [Concomitant]
  20. XALATAN [Concomitant]

REACTIONS (15)
  - ANAEMIA [None]
  - CARDIAC FAILURE CONGESTIVE [None]
  - COAGULOPATHY [None]
  - DIZZINESS [None]
  - GASTRITIS [None]
  - GASTROINTESTINAL HAEMORRHAGE [None]
  - HAEMORRHAGE [None]
  - HYPOVOLAEMIC SHOCK [None]
  - INJECTION SITE URTICARIA [None]
  - LIVER FUNCTION TEST ABNORMAL [None]
  - METABOLIC ACIDOSIS [None]
  - PROTEIN C DEFICIENCY [None]
  - PROTEIN S DEFICIENCY [None]
  - PULMONARY OEDEMA [None]
  - RENAL FAILURE ACUTE [None]
